FAERS Safety Report 9048831 (Version 1)
Quarter: 2013Q1

REPORT INFORMATION
  Report Type: Spontaneous
  Country: US (occurrence: None)
  Receive Date: 20130130
  Receipt Date: 20130130
  Transmission Date: 20140127
  Serious: Yes (Other)
  Sender: FDA-Public Use
  Company Number: None

PATIENT
  Age: 53 Year
  Sex: Male

DRUGS (1)
  1. ENBREL 50MG TWICE WEEKLY AMGEN [Suspect]
     Indication: PSORIASIS
     Route: 058
     Dates: start: 20100121, end: 20130118

REACTIONS (1)
  - Hepatic cancer [None]
